FAERS Safety Report 12861829 (Version 3)
Quarter: 2017Q1

REPORT INFORMATION
  Report Type: Spontaneous
  Country: US (occurrence: US)
  Receive Date: 20161019
  Receipt Date: 20170101
  Transmission Date: 20170428
  Serious: No
  Sender: FDA-Public Use
  Company Number: US-ASTRAZENECA-2016SF01818

PATIENT
  Sex: Male

DRUGS (2)
  1. SEROQUEL [Suspect]
     Active Substance: QUETIAPINE FUMARATE
     Route: 048
  2. INVEGA [Concomitant]
     Active Substance: PALIPERIDONE

REACTIONS (8)
  - Anxiety [Unknown]
  - Gingival bleeding [Unknown]
  - Gynaecomastia [Unknown]
  - Mouth haemorrhage [Unknown]
  - Increased appetite [Unknown]
  - Dizziness [Unknown]
  - Musculoskeletal stiffness [Unknown]
  - Tremor [Unknown]
